FAERS Safety Report 4503449-1 (Version None)
Quarter: 2004Q4

REPORT INFORMATION
  Report Type: 
  Country: None (occurrence: None)
  Receive Date: 20041112
  Receipt Date: 20041028
  Transmission Date: 20050328
  Serious: Yes (Hospitalization)
  Sender: FDA-Public Use
  Company Number: FABR-10828

PATIENT
  Age: 33 Year
  Sex: Male
  Weight: 51.2 kg

DRUGS (1)
  1. FABRAZYME [Suspect]
     Indication: FABRY'S DISEASE
     Dosage: 50 MG Q2WKS IV
     Route: 042
     Dates: start: 20040708

REACTIONS (2)
  - RENAL FAILURE [None]
  - RENAL TRANSPLANT [None]
